FAERS Safety Report 5605037-2 (Version None)
Quarter: 2008Q1

REPORT INFORMATION
  Report Type: 
  Country: None (occurrence: None)
  Receive Date: 20080111
  Receipt Date: 20071005
  Transmission Date: 20080703
  Serious: Yes (Other)
  Sender: FDA-Public Use
  Company Number: HQWYE255520JUL04

PATIENT
  Age: 51 Year
  Sex: Female

DRUGS (4)
  1. PREMPRO [Suspect]
     Indication: DRUG USE FOR UNKNOWN INDICATION
  2. MEDROXYPROGESTERONE [Suspect]
     Indication: DRUG USE FOR UNKNOWN INDICATION
  3. PREFEST [Suspect]
     Indication: DRUG USE FOR UNKNOWN INDICATION
  4. PREMARIN [Suspect]

REACTIONS (1)
  - BREAST CANCER [None]
